FAERS Safety Report 20000998 (Version 3)
Quarter: 2021Q4

REPORT INFORMATION
  Report Type: Spontaneous
  Country: JP (occurrence: JP)
  Receive Date: 20211027
  Receipt Date: 20211227
  Transmission Date: 20220303
  Serious: Yes (Other)
  Sender: FDA-Public Use
  Company Number: JP-NOVARTISPH-NVSJ2021JP016531

PATIENT
  Age: 78 Year
  Sex: Male

DRUGS (3)
  1. BEOVU [Suspect]
     Active Substance: BROLUCIZUMAB-DBLL
     Indication: Age-related macular degeneration
     Dosage: 6 MG
     Route: 031
     Dates: start: 20210713, end: 20210713
  2. BEOVU [Suspect]
     Active Substance: BROLUCIZUMAB-DBLL
     Dosage: 6 MG
     Route: 031
     Dates: start: 20211019
  3. LATANOPROST [Concomitant]
     Active Substance: LATANOPROST
     Indication: Intraocular pressure increased
     Dosage: UNK, QD,RIGHT EYE
     Route: 047
     Dates: start: 20211116

REACTIONS (5)
  - Keratic precipitates [Recovered/Resolved]
  - Blindness transient [Recovered/Resolved]
  - Iritis [Recovered/Resolved]
  - Anterior chamber cell [Unknown]
  - Anterior chamber flare [Unknown]

NARRATIVE: CASE EVENT DATE: 20210928
